FAERS Safety Report 11999837 (Version 1)
Quarter: 2016Q1

REPORT INFORMATION
  Report Type: Spontaneous
  Country: US (occurrence: None)
  Receive Date: 20160203
  Receipt Date: 20160203
  Transmission Date: 20160526
  Serious: Yes (Hospitalization)
  Sender: FDA-Public Use
  Company Number: None

PATIENT
  Age: 49 Year
  Sex: Female

DRUGS (1)
  1. HUMIRA [Suspect]
     Active Substance: ADALIMUMAB
     Indication: CROHN^S DISEASE
     Dosage: 40 MG, EVERY 2 WEEKS, SQ-PEN
     Route: 058
     Dates: start: 20151001

REACTIONS (2)
  - Thrombosis [None]
  - Pulmonary thrombosis [None]

NARRATIVE: CASE EVENT DATE: 20151019
